FAERS Safety Report 17340451 (Version 1)
Quarter: 2020Q1

REPORT INFORMATION
  Report Type: Spontaneous
  Country: SE (occurrence: SE)
  Receive Date: 20200129
  Receipt Date: 20200129
  Transmission Date: 20200409
  Serious: Yes (Other)
  Sender: FDA-Public Use
  Company Number: SE-TOPROL ACQUISITION LLC-2020-TOP-000084

PATIENT
  Age: 67 Year
  Sex: Female

DRUGS (1)
  1. METOPROLOL SUCCINATE. [Suspect]
     Active Substance: METOPROLOL SUCCINATE
     Indication: HYPERTENSION
     Dosage: 50 MG, UNK
     Route: 048
     Dates: start: 200612

REACTIONS (3)
  - Cerebral thrombosis [Unknown]
  - Vascular dementia [Unknown]
  - Burnout syndrome [Unknown]
